FAERS Safety Report 11367896 (Version 1)
Quarter: 2015Q3

REPORT INFORMATION
  Report Type: Spontaneous
  Country: US (occurrence: None)
  Receive Date: 20150811
  Receipt Date: 20150811
  Transmission Date: 20151125
  Serious: Yes (Disabling)
  Sender: FDA-Public Use
  Company Number: None

PATIENT
  Age: 47 Year
  Sex: Female
  Weight: 54.43 kg

DRUGS (21)
  1. VITAMIN E [Concomitant]
     Active Substance: .ALPHA.-TOCOPHEROL
  2. CYMBALTA [Suspect]
     Active Substance: DULOXETINE HYDROCHLORIDE
     Indication: DEPRESSION
     Dosage: 1 TAKEN BY MOUTH
     Route: 048
     Dates: start: 20111230, end: 20150810
  3. CYMBALTA [Concomitant]
     Active Substance: DULOXETINE HYDROCHLORIDE
  4. SEROQUEL [Concomitant]
     Active Substance: QUETIAPINE FUMARATE
  5. IRON [Concomitant]
     Active Substance: IRON
  6. MIOLK THISTLE [Concomitant]
  7. BUPROPION XL [Concomitant]
     Active Substance: BUPROPION
  8. PRILOSEC [Concomitant]
     Active Substance: OMEPRAZOLE MAGNESIUM
  9. OXYCODONE [Concomitant]
     Active Substance: OXYCODONE
  10. MULTIVITAMIN [Concomitant]
     Active Substance: VITAMINS
  11. MAGNESIUM [Concomitant]
     Active Substance: MAGNESIUM
  12. CYMBALTA [Suspect]
     Active Substance: DULOXETINE HYDROCHLORIDE
     Indication: FIBROMYALGIA
     Dosage: 1 TAKEN BY MOUTH
     Route: 048
     Dates: start: 20111230, end: 20150810
  13. LAMICTAL [Concomitant]
     Active Substance: LAMOTRIGINE
  14. ALPRAZOLAM. [Concomitant]
     Active Substance: ALPRAZOLAM
  15. TIZANIDINE. [Concomitant]
     Active Substance: TIZANIDINE
  16. LEVOTHYROXINE. [Concomitant]
     Active Substance: LEVOTHYROXINE
  17. FISH OIL [Concomitant]
     Active Substance: FISH OIL
  18. CYMBALTA [Suspect]
     Active Substance: DULOXETINE HYDROCHLORIDE
     Indication: ARTHRITIS
     Dosage: 1 TAKEN BY MOUTH
     Route: 048
     Dates: start: 20111230, end: 20150810
  19. ESTRADIOL. [Concomitant]
     Active Substance: ESTRADIOL
  20. VALACYCLOVIR [Concomitant]
     Active Substance: VALACYCLOVIR HYDROCHLORIDE
  21. CALCIUM [Concomitant]
     Active Substance: CALCIUM

REACTIONS (5)
  - Onychalgia [None]
  - Nail ridging [None]
  - Product substitution issue [None]
  - Nail disorder [None]
  - Visual impairment [None]

NARRATIVE: CASE EVENT DATE: 20150723
